FAERS Safety Report 7706736-9 (Version None)
Quarter: 2011Q3

REPORT INFORMATION
  Report Type: 
  Country: None (occurrence: None)
  Receive Date: 20110818
  Receipt Date: 20110805
  Transmission Date: 20111222
  Serious: Yes (Other)
  Sender: FDA-Public Use
  Company Number: ES-1187494

PATIENT
  Age: 6 Year
  Sex: Male
  Weight: 25 kg

DRUGS (1)
  1. CYCLOPENTOLATE HYDROCHLORIDE [Suspect]
     Indication: FUNDOSCOPY
     Dosage: (OPHTHALMIC)
     Route: 047
     Dates: start: 20110629, end: 20110629

REACTIONS (8)
  - DYSKINESIA [None]
  - VOMITING [None]
  - NEUROLOGICAL SYMPTOM [None]
  - UNRESPONSIVE TO STIMULI [None]
  - STARING [None]
  - PYREXIA [None]
  - DIZZINESS [None]
  - MYDRIASIS [None]
